FAERS Safety Report 16021796 (Version 10)
Quarter: 2020Q3

REPORT INFORMATION
  Report Type: Report from Study
  Country: CN (occurrence: CN)
  Receive Date: 20190301
  Receipt Date: 20190709
  Transmission Date: 20201104
  Serious: Yes (Hospitalization)
  Sender: FDA-Public Use
  Company Number: CN-ROCHE-2248364

PATIENT
  Age: 31 Year
  Sex: Male
  Weight: 51 kg

DRUGS (68)
  1. CEFOPERAZONE;SULBACTAM [Concomitant]
     Dosage: SKIN TEST
     Route: 062
     Dates: start: 20190119, end: 20190119
  2. POTASSIUM CHLORIDE. [Concomitant]
     Active Substance: POTASSIUM CHLORIDE
     Indication: FLUID REPLACEMENT
     Dosage: POTASSIUM SUPPLEMENT
     Route: 042
     Dates: start: 20190114, end: 20190115
  3. POTASSIUM CHLORIDE. [Concomitant]
     Active Substance: POTASSIUM CHLORIDE
     Indication: ELECTROLYTE SUBSTITUTION THERAPY
     Dosage: POTASSIUM SUPPLEMENT
     Route: 042
     Dates: start: 20190117, end: 20190117
  4. SODIUM CHLORIDE. [Concomitant]
     Active Substance: SODIUM CHLORIDE
     Indication: FLUID REPLACEMENT
     Dosage: ANTI?INFECTION
     Route: 042
     Dates: start: 20190114, end: 20190115
  5. SODIUM CHLORIDE. [Concomitant]
     Active Substance: SODIUM CHLORIDE
     Dosage: FLUID INFUSION
     Route: 042
     Dates: start: 20190117, end: 20190117
  6. DIPHENHYDRAMINE HYDROCHLORIDE. [Concomitant]
     Active Substance: DIPHENHYDRAMINE HYDROCHLORIDE
     Dosage: ALLERGY PREVENTION
     Route: 030
     Dates: start: 20190118, end: 20190118
  7. HYDROCORTISONE SODIUM SUCCINATE [Concomitant]
     Active Substance: HYDROCORTISONE SODIUM SUCCINATE
     Dosage: ALLERGY PREVENTION
     Route: 042
     Dates: start: 20190117, end: 20190117
  8. POTASSIUM ASPARTATE [Concomitant]
     Active Substance: POTASSIUM ASPARTATE
     Dosage: ALLERGY PREVENTION
     Route: 042
     Dates: start: 20190117, end: 20190117
  9. MAGNESIUM ASPARTATE [Concomitant]
     Active Substance: MAGNESIUM ASPARTATE
     Dosage: ALLERGY PREVENTION
     Route: 042
     Dates: start: 20190117, end: 20190117
  10. ISOSORBIDE MONONITRATE. [Concomitant]
     Active Substance: ISOSORBIDE MONONITRATE
     Dosage: CROWN EXTENDED TREATMENT
     Route: 042
     Dates: start: 20190118, end: 20190118
  11. LEVOFLOXACIN LACTATE [Concomitant]
     Active Substance: LEVOFLOXACIN LACTATE
     Dosage: ANTI?INFLAMMATION
     Route: 042
     Dates: start: 20190113, end: 20190113
  12. CARBAZOCHROME SODIUM SULFONATE [Concomitant]
     Active Substance: CARBAZOCHROME SODIUM SULFONATE
     Indication: HAEMOSTASIS
     Route: 042
     Dates: start: 20190118, end: 20190118
  13. AZINTAMIDE [Concomitant]
     Active Substance: AZINTAMIDE
     Dosage: PROMOTES BILE SECRETION
     Route: 048
     Dates: start: 20190203, end: 20190410
  14. MEGLUMINE DIATRIZOATE [Concomitant]
     Active Substance: DIATRIZOATE MEGLUMINE\DIATRIZOATE SODIUM
     Indication: COMPUTERISED TOMOGRAM
     Dosage: FOR ABDOMINAL CT SCAN
     Route: 048
     Dates: start: 20190327, end: 20190327
  15. OXYGEN. [Concomitant]
     Active Substance: OXYGEN
     Indication: HYPOXIA
     Route: 050
     Dates: start: 20190118, end: 20190122
  16. PANTOPRAZOLE SODIUM. [Concomitant]
     Active Substance: PANTOPRAZOLE SODIUM
     Dosage: ACID SUPPRESSION
     Route: 042
     Dates: start: 20190114, end: 20190115
  17. PANTOPRAZOLE SODIUM. [Concomitant]
     Active Substance: PANTOPRAZOLE SODIUM
     Route: 042
     Dates: start: 20190118, end: 20190125
  18. PIPERACILLIN SODIUM;TAZOBACTAM SODIUM [Concomitant]
     Active Substance: PIPERACILLIN SODIUM\TAZOBACTAM SODIUM
     Dosage: SKIN TEST
     Route: 062
     Dates: start: 20190116, end: 20190116
  19. DEXAMETHASONE SODIUM PHOSPHATE. [Concomitant]
     Active Substance: DEXAMETHASONE SODIUM PHOSPHATE
     Route: 042
     Dates: start: 20190119, end: 20190119
  20. FUROSEMIDE. [Concomitant]
     Active Substance: FUROSEMIDE
     Route: 042
     Dates: start: 20190218, end: 20190218
  21. ETAMSYLATE [Concomitant]
     Active Substance: ETHAMSYLATE
     Indication: HAEMOSTASIS
     Route: 042
     Dates: start: 20190118, end: 20190118
  22. COMPOUND SODIUM CHLORIDE [CALCIUM CHLORIDE;POTASSIUM CHLORIDE;SODIUM C [Concomitant]
     Indication: FLUID REPLACEMENT
     Route: 042
     Dates: start: 20190114, end: 20190114
  23. CEFOXITIN SODIUM [Concomitant]
     Active Substance: CEFOXITIN SODIUM
     Dosage: SKIN TEST
     Route: 062
     Dates: start: 20190114, end: 20190114
  24. METRONIDAZOLE. [Concomitant]
     Active Substance: METRONIDAZOLE
     Indication: URINARY TRACT INFECTION
     Dosage: ANTI?INFECTION
     Route: 042
     Dates: start: 20190114, end: 20190115
  25. FUROSEMIDE. [Concomitant]
     Active Substance: FUROSEMIDE
     Route: 042
     Dates: start: 20190131, end: 20190201
  26. FUROSEMIDE. [Concomitant]
     Active Substance: FUROSEMIDE
     Route: 042
     Dates: start: 20190215, end: 20190216
  27. PROMETHAZINE HYDROCHLORIDE. [Concomitant]
     Active Substance: PROMETHAZINE HYDROCHLORIDE
     Indication: ALLERGY PROPHYLAXIS
     Route: 048
     Dates: start: 20190119, end: 20190120
  28. FAT EMULSION NOS [Concomitant]
     Active Substance: EGG PHOSPHOLIPIDS\SAFFLOWER OIL\SOYBEAN OIL
     Dosage: SUPPLEMENT NUTRITION
     Route: 042
     Dates: start: 20190125, end: 20190213
  29. GLUCOSE [Concomitant]
     Active Substance: DEXTROSE
     Dosage: FLUID INFUSION
     Route: 042
     Dates: start: 20190117, end: 20190117
  30. CEFOPERAZONE;SULBACTAM [Concomitant]
     Dosage: ANTI?INFECTION
     Route: 042
     Dates: start: 20190119, end: 20190128
  31. SODIUM CHLORIDE. [Concomitant]
     Active Substance: SODIUM CHLORIDE
     Route: 042
     Dates: start: 20190118, end: 20190125
  32. PANTOPRAZOLE SODIUM. [Concomitant]
     Active Substance: PANTOPRAZOLE SODIUM
     Dosage: ACID SUPPRESSION
     Route: 042
     Dates: start: 20190117, end: 20190117
  33. DEXAMETHASONE SODIUM PHOSPHATE. [Concomitant]
     Active Substance: DEXAMETHASONE SODIUM PHOSPHATE
     Indication: ALLERGY PROPHYLAXIS
     Route: 042
     Dates: start: 20190117, end: 20190117
  34. LEVOCARNITINE. [Concomitant]
     Active Substance: LEVOCARNITINE
     Dosage: SUPPORT A HEALTHY HEART
     Route: 042
     Dates: start: 20190118, end: 20190118
  35. EMICIZUMAB. [Suspect]
     Active Substance: EMICIZUMAB
     Indication: FACTOR VIII DEFICIENCY
     Dosage: MOST RECENT DOSE (76.5 MG) OF EMICIZUMAB ON 09/JAN/2019?MOST RECENT DOSE OF EMICIZUMAB 76.5 MG ON: 2
     Route: 058
     Dates: start: 20180613
  36. POTASSIUM CHLORIDE. [Concomitant]
     Active Substance: POTASSIUM CHLORIDE
     Route: 042
     Dates: start: 20190118, end: 20190212
  37. PANTOPRAZOLE SODIUM. [Concomitant]
     Active Substance: PANTOPRAZOLE SODIUM
     Route: 042
     Dates: start: 20190204, end: 20190227
  38. FUROSEMIDE. [Concomitant]
     Active Substance: FUROSEMIDE
     Route: 042
     Dates: start: 20190118, end: 20190119
  39. POTASSIUM CHLORIDE. [Concomitant]
     Active Substance: POTASSIUM CHLORIDE
     Route: 042
     Dates: start: 20190131, end: 20190216
  40. SODIUM CHLORIDE. [Concomitant]
     Active Substance: SODIUM CHLORIDE
     Indication: URINARY TRACT INFECTION
     Route: 042
     Dates: start: 20190115, end: 20190116
  41. TORASEMIDE [Concomitant]
     Active Substance: TORSEMIDE
     Indication: POLYURIA
     Route: 042
     Dates: start: 20190116, end: 20190118
  42. FRUCTOSE [Concomitant]
     Active Substance: FRUCTOSE
     Dosage: REPLENISH ENERGY
     Route: 042
     Dates: start: 20190116, end: 20190116
  43. FUROSEMIDE. [Concomitant]
     Active Substance: FUROSEMIDE
     Indication: POLYURIA
     Route: 042
     Dates: start: 20190118, end: 20190118
  44. HUMAN ALBUMIN [Concomitant]
     Active Substance: ALBUMIN HUMAN
     Indication: CARDIAC FAILURE
     Dosage: SUPPLEMENTARY ALBUMIN
     Route: 042
     Dates: start: 20190118, end: 20190118
  45. VITAMIN C [Concomitant]
     Active Substance: ASCORBIC ACID
     Dosage: VITAMIN SUPPLEMENTATION
     Route: 042
     Dates: start: 20190118, end: 20190118
  46. METOCLOPRAMIDE DIHYDROCHLORIDE [Concomitant]
     Dosage: ANTIEMESIS.
     Route: 030
     Dates: start: 20190115, end: 20190115
  47. CHLORPHENIRAMINE [CHLORPHENAMINE] [Concomitant]
     Active Substance: CHLORPHENIRAMINE
     Indication: ALLERGY PROPHYLAXIS
     Route: 048
     Dates: start: 20190119, end: 20190120
  48. RABEPRAZOLE SODIUM. [Concomitant]
     Active Substance: RABEPRAZOLE SODIUM
     Dosage: ACID SUPPRESSION
     Route: 048
     Dates: start: 20190227, end: 20190410
  49. GLUCOSE [Concomitant]
     Active Substance: DEXTROSE
     Route: 065
     Dates: start: 20190118, end: 20190124
  50. GLUCOSE [Concomitant]
     Active Substance: DEXTROSE
     Route: 065
     Dates: start: 20190125, end: 20190212
  51. EMICIZUMAB. [Suspect]
     Active Substance: EMICIZUMAB
     Route: 058
     Dates: start: 20190131
  52. CEFOXITIN [Concomitant]
     Active Substance: CEFOXITIN SODIUM
     Dosage: TO RESIST INFECTION
     Route: 065
  53. FRUCTOSE [Concomitant]
     Active Substance: FRUCTOSE
     Dosage: REPLENISH ENERGY
     Route: 042
     Dates: start: 20190117, end: 20190117
  54. PIPERACILLIN SODIUM;TAZOBACTAM SODIUM [Concomitant]
     Active Substance: PIPERACILLIN SODIUM\TAZOBACTAM SODIUM
     Dosage: NTI?INFLAMMATORY
     Route: 042
     Dates: start: 20190116, end: 20190117
  55. LEVOCARNITINE. [Concomitant]
     Active Substance: LEVOCARNITINE
     Dosage: SUPPORT A HEALTHY HEART
     Route: 042
     Dates: start: 20190116, end: 20190116
  56. DIPHENHYDRAMINE HYDROCHLORIDE. [Concomitant]
     Active Substance: DIPHENHYDRAMINE HYDROCHLORIDE
     Dosage: ALLERGY PREVENTION
     Route: 030
     Dates: start: 20190117, end: 20190117
  57. GLUCOSE [Concomitant]
     Active Substance: DEXTROSE
     Route: 042
     Dates: start: 20190213, end: 20190225
  58. FACTOR VIII [Concomitant]
     Active Substance: ANTIHEMOPHILIC FACTOR HUMAN
     Indication: FACTOR VIII DEFICIENCY
  59. METRONIDAZOLE. [Concomitant]
     Active Substance: METRONIDAZOLE
     Dosage: TO RESIST INFECTION
     Route: 065
  60. CEFOXITIN SODIUM [Concomitant]
     Active Substance: CEFOXITIN SODIUM
     Dosage: ANTI?INFECTION
     Route: 042
     Dates: start: 20190114, end: 20190115
  61. POTASSIUM CHLORIDE. [Concomitant]
     Active Substance: POTASSIUM CHLORIDE
     Route: 042
     Dates: start: 20190131, end: 20190223
  62. SODIUM CHLORIDE. [Concomitant]
     Active Substance: SODIUM CHLORIDE
     Dosage: ANTI?INFLAMMATION
     Route: 042
     Dates: start: 20190113, end: 20190113
  63. CALCIUM GLUCONATE. [Concomitant]
     Active Substance: CALCIUM GLUCONATE
     Dosage: ANTIANAPHYLACTIC TREATMENT
     Route: 042
     Dates: start: 20190114, end: 20190115
  64. PANTOPRAZOLE SODIUM. [Concomitant]
     Active Substance: PANTOPRAZOLE SODIUM
     Route: 042
     Dates: start: 20190125, end: 20190204
  65. PHLOROGLUCINOL [Concomitant]
     Active Substance: PHLOROGLUCINOL
     Indication: MUSCLE SPASMS
     Route: 042
     Dates: start: 20190116, end: 20190116
  66. DESMOPRESSIN ACETATE. [Concomitant]
     Active Substance: DESMOPRESSIN ACETATE
     Dosage: INCREASE THE CONCENTRATION OF FVIII
     Route: 042
     Dates: start: 20190116, end: 20190117
  67. METOCLOPRAMIDE DIHYDROCHLORIDE [Concomitant]
     Dosage: ANTIEMESIS
     Route: 030
     Dates: start: 20190117, end: 20190117
  68. GLUCOSE [Concomitant]
     Active Substance: DEXTROSE
     Route: 042
     Dates: start: 20190114, end: 20190116

REACTIONS (2)
  - Pancreatitis [Recovered/Resolved]
  - Intra-abdominal haemorrhage [Recovered/Resolved]

NARRATIVE: CASE EVENT DATE: 20190113
